FAERS Safety Report 13691106 (Version 1)
Quarter: 2017Q2

REPORT INFORMATION
  Report Type: Spontaneous
  Country: US (occurrence: US)
  Receive Date: 20170626
  Receipt Date: 20170626
  Transmission Date: 20170830
  Serious: No
  Sender: FDA-Public Use
  Company Number: US-ROCHE-790360

PATIENT
  Sex: Female

DRUGS (4)
  1. FLEXERIL [Concomitant]
     Active Substance: CYCLOBENZAPRINE HYDROCHLORIDE
     Route: 065
  2. CELLCEPT [Suspect]
     Active Substance: MYCOPHENOLATE MOFETIL\MYCOPHENOLATE MOFETIL HYDROCHLORIDE
     Indication: SYSTEMIC LUPUS ERYTHEMATOSUS
     Route: 065
  3. OXYCODONE [Concomitant]
     Active Substance: OXYCODONE
     Route: 065
  4. LEVOTHYROXINE. [Concomitant]
     Active Substance: LEVOTHYROXINE
     Route: 065

REACTIONS (1)
  - Muscle spasms [Unknown]
